FAERS Safety Report 7819471-3 (Version None)
Quarter: 2011Q4

REPORT INFORMATION
  Report Type: 
  Country: None (occurrence: None)
  Receive Date: 20111013
  Receipt Date: 20111003
  Transmission Date: 20120403
  Serious: Yes (Other)
  Sender: FDA-Public Use
  Company Number: 1000024418

PATIENT
  Age: 33 Year
  Sex: Male
  Weight: 90.7 kg

DRUGS (2)
  1. CELEXA [Suspect]
     Indication: DEPRESSION
     Dosage: 20 MG (20 MG, 1 IN 1 D),ORAL
     Route: 048
     Dates: start: 20100901, end: 20101001
  2. DEPO-MEDROL [Suspect]
     Indication: BACK PAIN
     Dosage: (20 MG)
     Dates: start: 20100804

REACTIONS (15)
  - MOOD ALTERED [None]
  - BLOOD CREATINE PHOSPHOKINASE INCREASED [None]
  - ERECTILE DYSFUNCTION [None]
  - ANGER [None]
  - LIPOATROPHY [None]
  - ALOPECIA [None]
  - AGGRESSION [None]
  - MUSCLE ATROPHY [None]
  - WEIGHT INCREASED [None]
  - DEPRESSION [None]
  - DRUG INEFFECTIVE [None]
  - IRRITABILITY [None]
  - SKIN ATROPHY [None]
  - ABNORMAL BEHAVIOUR [None]
  - DIARRHOEA [None]
